FAERS Safety Report 9668100 (Version 1)
Quarter: 2013Q4

REPORT INFORMATION
  Report Type: Spontaneous
  Country: US (occurrence: US)
  Receive Date: 20131104
  Receipt Date: 20131104
  Transmission Date: 20140711
  Serious: Yes (Other)
  Sender: FDA-Public Use
  Company Number: US-009507513-1311USA001122

PATIENT
  Sex: Female

DRUGS (1)
  1. COPPERTONE SPORT LOTION SPF 50 [Suspect]
     Indication: PRODUCT USED FOR UNKNOWN INDICATION
     Dosage: UNK
     Route: 061

REACTIONS (2)
  - Malignant melanoma [Not Recovered/Not Resolved]
  - Product quality issue [Not Recovered/Not Resolved]
